FAERS Safety Report 10009619 (Version 1)
Quarter: 2014Q1

REPORT INFORMATION
  Report Type: Spontaneous
  Country: US (occurrence: US)
  Receive Date: 20140312
  Receipt Date: 20140312
  Transmission Date: 20141002
  Serious: No
  Sender: FDA-Public Use
  Company Number: US-INCYTE CORPORATION-2012IN002154

PATIENT
  Age: 73 Year
  Sex: Female

DRUGS (9)
  1. JAKAFI [Suspect]
     Indication: MYELOFIBROSIS
     Dosage: 10 MG, BID
     Route: 048
     Dates: start: 201210
  2. LOTRONEX [Concomitant]
     Dosage: 1 MG, (ONE-HALF TABLET) QD
  3. LABETALOL [Concomitant]
     Dosage: 200 MG, BID
  4. PRILOSEC [Concomitant]
     Dosage: 20 MG, QD
  5. ASPIRIN [Concomitant]
     Dosage: 81 MG, QD
  6. ATARAX [Concomitant]
     Indication: PRURITUS
     Dosage: 25 MG, QPM
  7. SANCTURA [Concomitant]
     Dosage: 50 MG, QD
  8. BELLADONNA AND PHENOBARBITONE [Concomitant]
     Indication: IRRITABLE BOWEL SYNDROME
     Dosage: UNK, PRN
  9. CEPHALEXIN [Concomitant]
     Indication: URINARY TRACT INFECTION
     Dosage: 500 MG, TID X 7 DAYS

REACTIONS (3)
  - Bone pain [Unknown]
  - Headache [Unknown]
  - Contusion [Unknown]
